FAERS Safety Report 10387498 (Version 1)
Quarter: 2014Q3

REPORT INFORMATION
  Report Type: Spontaneous
  Country: US (occurrence: US)
  Receive Date: 20140815
  Receipt Date: 20140815
  Transmission Date: 20150326
  Serious: No
  Sender: FDA-Public Use
  Company Number: US-TARO-2013P1019883

PATIENT
  Age: 71 Year
  Sex: Female
  Weight: 56.7 kg

DRUGS (3)
  1. CLOMIPRAMINE [Concomitant]
     Active Substance: CLOMIPRAMINE
  2. METOPROLOL [Concomitant]
     Active Substance: METOPROLOL
  3. ATHLETES FOOT NOS [Suspect]
     Active Substance: MICONAZOLE NITRATE OR TERBINAFINE HYDROCHLORIDE OR TOLNAFTATE
     Dosage: QD
     Route: 061
     Dates: start: 20130827, end: 20131001

REACTIONS (2)
  - Body tinea [Not Recovered/Not Resolved]
  - Drug ineffective [Not Recovered/Not Resolved]

NARRATIVE: CASE EVENT DATE: 20130827
